FAERS Safety Report 5510207-8 (Version None)
Quarter: 2007Q4

REPORT INFORMATION
  Report Type: 
  Country: None (occurrence: None)
  Receive Date: 20071108
  Receipt Date: 20071029
  Transmission Date: 20080405
  Serious: Yes (Hospitalization, Other)
  Sender: FDA-Public Use
  Company Number: US-ELI_LILLY_AND_COMPANY-US200709004104

PATIENT
  Sex: Female
  Weight: 44.898 kg

DRUGS (2)
  1. FORTEO [Suspect]
     Indication: OSTEOGENESIS IMPERFECTA
     Dates: end: 20070917
  2. OXYCONTIN [Concomitant]

REACTIONS (3)
  - ACETABULUM FRACTURE [None]
  - CRYING [None]
  - FALL [None]
